FAERS Safety Report 4653062-0 (Version None)
Quarter: 2005Q2

REPORT INFORMATION
  Report Type: 
  Country: None (occurrence: None)
  Receive Date: 20050505
  Receipt Date: 20050422
  Transmission Date: 20051028
  Serious: Yes (Hospitalization)
  Sender: FDA-Public Use
  Company Number: NO-MERCK-0505NOR00002

PATIENT
  Age: 39 Year
  Sex: Male

DRUGS (3)
  1. VIOXX [Suspect]
     Indication: ARTHRALGIA
     Route: 048
     Dates: start: 20030308, end: 20030319
  2. PIROXICAM BETADEX [Concomitant]
     Indication: ARTHRALGIA
     Route: 065
     Dates: start: 20050308
  3. ACETAMINOPHEN AND CODEINE PHOSPHATE [Concomitant]
     Indication: PAIN
     Route: 065
     Dates: start: 20050320, end: 20050320

REACTIONS (6)
  - ASTHENIA [None]
  - DYSPNOEA [None]
  - MUSCLE SPASMS [None]
  - MUSCULAR WEAKNESS [None]
  - MYALGIA [None]
  - OVERDOSE [None]
